FAERS Safety Report 12269508 (Version 4)
Quarter: 2016Q4

REPORT INFORMATION
  Report Type: Report from Study
  Country: JP (occurrence: JP)
  Receive Date: 20160414
  Receipt Date: 20161209
  Transmission Date: 20170207
  Serious: Yes (Death, Other)
  Sender: FDA-Public Use
  Company Number: JP-INCYTE CORPORATION-2016IN002087

PATIENT
  Age: 83 Year
  Sex: Female

DRUGS (1)
  1. JAKAVI [Suspect]
     Active Substance: RUXOLITINIB
     Indication: MYELOFIBROSIS
     Dosage: 5 MG, BID
     Route: 048
     Dates: start: 20160301, end: 20160312

REACTIONS (3)
  - General physical health deterioration [Fatal]
  - Myelodysplastic syndrome [Fatal]
  - Sepsis [Unknown]

NARRATIVE: CASE EVENT DATE: 20160226
